FAERS Safety Report 23324932 (Version 1)
Quarter: 2023Q4

REPORT INFORMATION
  Report Type: Report from Study
  Country: US (occurrence: US)
  Receive Date: 20231221
  Receipt Date: 20231221
  Transmission Date: 20240110
  Serious: No
  Sender: FDA-Public Use
  Company Number: US-OPELLA-2023OHG019280

PATIENT
  Age: 70 Year
  Sex: Male

DRUGS (1)
  1. ICY HOT LIDOCAINE NO-MESS [Suspect]
     Active Substance: LIDOCAINE HYDROCHLORIDE

REACTIONS (2)
  - Drug ineffective [Unknown]
  - No adverse event [Unknown]
